FAERS Safety Report 9557662 (Version 1)
Quarter: 2013Q3

REPORT INFORMATION
  Report Type: Spontaneous
  Country: US (occurrence: None)
  Receive Date: 20130724
  Receipt Date: 20130724
  Transmission Date: 20140515
  Serious: Yes (Hospitalization, Other)
  Sender: FDA-Public Use
  Company Number: PHEH2012US023358

PATIENT
  Age: 84 Year
  Sex: Male
  Weight: 61.6 kg

DRUGS (5)
  1. GLEEVEC (IMATINIB) UNKNOWN [Suspect]
     Indication: CHRONIC MYELOID LEUKAEMIA
     Route: 048
     Dates: start: 201202
  2. OXYCONTIN (OXYCODONE HYDROCHLORIDE) [Concomitant]
  3. CASODEX (BICALUTAMIDE) [Concomitant]
  4. OXYCODONE (OXYCODONE) [Concomitant]
  5. ALBUTEROL (SALBUTAMOL) [Concomitant]

REACTIONS (4)
  - Cardiac failure [None]
  - Cardiac disorder [None]
  - Lung disorder [None]
  - Ejection fraction decreased [None]
